FAERS Safety Report 8319682-7 (Version None)
Quarter: 2012Q2

REPORT INFORMATION
  Report Type: 
  Country: None (occurrence: None)
  Receive Date: 20120427
  Receipt Date: 20120213
  Transmission Date: 20120825
  Serious: Yes (Other)
  Sender: FDA-Public Use
  Company Number: US-ROXANE LABORATORIES, INC.-2012-EU-00881GD

PATIENT
  Age: 87 Year
  Sex: Female

DRUGS (5)
  1. TRAZODONE HCL [Concomitant]
     Indication: INSOMNIA
     Dosage: 50 MG
  2. ENALAPRIL MALEATE [Concomitant]
     Indication: HYPERTENSION
     Dosage: 5 MG
     Route: 048
  3. SERTRALINE HYDROCHLORIDE [Suspect]
     Indication: MAJOR DEPRESSION
     Dosage: 50 MG
     Route: 048
     Dates: start: 20091201
  4. HALOPERIDOL [Concomitant]
     Indication: AGGRESSION
     Dosage: 0.75 MG
     Route: 048
  5. LEVOTHYROXINE SODIUM [Concomitant]
     Indication: HYPOTHYROIDISM
     Dosage: 112 MCG
     Route: 048

REACTIONS (4)
  - DEPRESSED LEVEL OF CONSCIOUSNESS [None]
  - DISTURBANCE IN ATTENTION [None]
  - INAPPROPRIATE ANTIDIURETIC HORMONE SECRETION [None]
  - DISORIENTATION [None]
